FAERS Safety Report 15801504 (Version 1)
Quarter: 2019Q1

REPORT INFORMATION
  Report Type: Spontaneous
  Country: CN (occurrence: CN)
  Receive Date: 20190109
  Receipt Date: 20190109
  Transmission Date: 20190417
  Serious: Yes (Hospitalization)
  Sender: FDA-Public Use
  Company Number: CN-ASTELLAS-2019US000764

PATIENT
  Age: 32 Year
  Sex: Male

DRUGS (9)
  1. TACROLIMUS. [Interacting]
     Active Substance: TACROLIMUS
     Route: 065
     Dates: start: 20171027, end: 20171030
  2. TACROLIMUS. [Suspect]
     Active Substance: TACROLIMUS
     Indication: RENAL TRANSPLANT
     Dosage: 3 MG, TWICE DAILY (3 MG IN THE MORNING AND 3 MG AT NIGHT)
     Route: 065
     Dates: start: 201710, end: 20171022
  3. TACROLIMUS. [Interacting]
     Active Substance: TACROLIMUS
     Route: 065
     Dates: start: 20171022, end: 20171027
  4. TACROLIMUS. [Interacting]
     Active Substance: TACROLIMUS
     Route: 065
     Dates: start: 20171030, end: 20171101
  5. DILTIAZEM. [Interacting]
     Active Substance: DILTIAZEM
     Indication: IMMUNOSUPPRESSANT DRUG LEVEL DECREASED
     Route: 065
     Dates: start: 20171027
  6. MYCOPHENOLATE SODIUM [Concomitant]
     Active Substance: MYCOPHENOLATE SODIUM
     Indication: RENAL TRANSPLANT
     Dosage: 540 MG, TWICE DAILY (540 MG IN THE MORNING AND 540 MG AT NIGHT IN FULL TABLETS ON EMPTY STOMACH)
     Route: 065
     Dates: start: 201710
  7. TACROLIMUS. [Interacting]
     Active Substance: TACROLIMUS
     Route: 065
     Dates: start: 20171101, end: 20171106
  8. TACROLIMUS. [Interacting]
     Active Substance: TACROLIMUS
     Route: 065
     Dates: start: 20171106
  9. PREDNISONE ACETATE [Concomitant]
     Active Substance: PREDNISONE ACETATE
     Indication: RENAL TRANSPLANT
     Dosage: 30 MG, ONCE DAILY (30 MG TAKEN AT 07:00-08:00 IN THE MORNING)
     Route: 065
     Dates: start: 201710

REACTIONS (3)
  - Drug interaction [Unknown]
  - Drug interaction [Unknown]
  - Drug level below therapeutic [Recovered/Resolved]

NARRATIVE: CASE EVENT DATE: 201710
